FAERS Safety Report 8070969-5 (Version None)
Quarter: 2012Q1

REPORT INFORMATION
  Report Type: 
  Country: None (occurrence: None)
  Receive Date: 20120125
  Receipt Date: 20120119
  Transmission Date: 20120608
  Serious: Yes (Hospitalization, Disabling, Other)
  Sender: FDA-Public Use
  Company Number: US-MERCK-1107USA03464

PATIENT
  Age: 50 Year
  Sex: Female

DRUGS (5)
  1. CALCIUM CITRATE [Concomitant]
     Route: 065
     Dates: start: 19800101
  2. FOSAMAX [Suspect]
     Route: 048
     Dates: start: 20040101, end: 20050901
  3. FOSAMAX [Suspect]
     Route: 048
     Dates: start: 20010901, end: 20031201
  4. FOSAMAX [Suspect]
     Indication: PROPHYLAXIS
     Route: 048
     Dates: start: 19970801, end: 20010801
  5. OMEGA-3 MARINE TRIGLYCERIDES [Concomitant]
     Route: 065
     Dates: start: 19970101

REACTIONS (13)
  - HERPES ZOSTER OPHTHALMIC [None]
  - BONE DISORDER [None]
  - LOW TURNOVER OSTEOPATHY [None]
  - BREAST DISORDER [None]
  - BREAST CANCER [None]
  - HYPERTENSION [None]
  - FOOT FRACTURE [None]
  - BLOOD CHOLESTEROL INCREASED [None]
  - FEMUR FRACTURE [None]
  - OSTEOPOROSIS [None]
  - STRESS FRACTURE [None]
  - ADVERSE EVENT [None]
  - HERPES ZOSTER [None]
